FAERS Safety Report 5231768-2 (Version None)
Quarter: 2007Q1

REPORT INFORMATION
  Report Type: 
  Country: None (occurrence: None)
  Receive Date: 20070206
  Receipt Date: 20070131
  Transmission Date: 20070707
  Serious: Yes (Hospitalization, Other)
  Sender: FDA-Public Use
  Company Number: DE-PFIZER INC-2006153388

PATIENT
  Sex: Female
  Weight: 60 kg

DRUGS (1)
  1. DETRUSITOL [Suspect]
     Indication: URINARY INCONTINENCE
     Route: 048
     Dates: start: 19960101, end: 20061212

REACTIONS (2)
  - BREAST CANCER [None]
  - SCLERODERMA [None]
